FAERS Safety Report 9836865 (Version 1)
Quarter: 2014Q1

REPORT INFORMATION
  Report Type: Spontaneous
  Country: US (occurrence: US)
  Receive Date: 20140123
  Receipt Date: 20140123
  Transmission Date: 20141002
  Serious: No
  Sender: FDA-Public Use
  Company Number: US-PFIZER INC-2014019747

PATIENT
  Age: 57 Year
  Sex: Male
  Weight: 147 kg

DRUGS (1)
  1. NEURONTIN [Suspect]
     Indication: DIABETIC NEUROPATHY
     Dosage: 300 MG, 3X/DAY
     Dates: start: 2012, end: 2012

REACTIONS (3)
  - Off label use [Unknown]
  - Malaise [Unknown]
  - Drug hypersensitivity [Unknown]
